FAERS Safety Report 14191033 (Version 2)
Quarter: 2017Q4

REPORT INFORMATION
  Report Type: Spontaneous
  Country: BR (occurrence: BR)
  Receive Date: 20171115
  Receipt Date: 20171211
  Transmission Date: 20180321
  Serious: Yes (Other)
  Sender: FDA-Public Use
  Company Number: BR-PFIZER INC-2017163610

PATIENT
  Age: 71 Year
  Sex: Male
  Weight: 87 kg

DRUGS (6)
  1. GENOTROPIN [Suspect]
     Active Substance: SOMATROPIN
     Indication: GLUTATHIONE SYNTHETASE DEFICIENCY
  2. GENOTROPIN [Suspect]
     Active Substance: SOMATROPIN
     Indication: BODY MASS INDEX DECREASED
  3. HCG [Concomitant]
     Active Substance: GONADOTROPHIN, CHORIONIC
     Dosage: UNK
  4. CENTRUM [Concomitant]
     Active Substance: VITAMINS
     Dosage: UNK
     Dates: start: 2016
  5. GENOTROPIN [Suspect]
     Active Substance: SOMATROPIN
     Indication: PHYSICAL FITNESS TRAINING
     Dosage: 0.9 MG, DAILY
     Route: 058
     Dates: start: 20170310, end: 201707
  6. MELATONIN [Concomitant]
     Active Substance: MELATONIN
     Dosage: UNK

REACTIONS (1)
  - Prostate cancer [Unknown]

NARRATIVE: CASE EVENT DATE: 201708
